FAERS Safety Report 8165321-8 (Version None)
Quarter: 2012Q1

REPORT INFORMATION
  Report Type: 
  Country: None (occurrence: None)
  Receive Date: 20120222
  Receipt Date: 20120222
  Transmission Date: 20120608
  Serious: No
  Sender: FDA-Public Use
  Company Number: None

PATIENT
  Sex: Male

DRUGS (2)
  1. PEG-INTRON [Suspect]
     Indication: HEPATITIS C
     Dosage: 150 MCG QW SQ
     Route: 058
     Dates: start: 20120104, end: 20120203
  2. RIBAVIRIN [Suspect]
     Dosage: 600 MG BID PO
     Route: 048
     Dates: start: 20120104, end: 20120203

REACTIONS (6)
  - INJECTION SITE PAIN [None]
  - INJECTION SITE INFLAMMATION [None]
  - FATIGUE [None]
  - GAIT DISTURBANCE [None]
  - INJECTION SITE REACTION [None]
  - INJECTION SITE ERYTHEMA [None]
